FAERS Safety Report 18839272 (Version 3)
Quarter: 2021Q1

REPORT INFORMATION
  Report Type: Report from Study
  Country: US (occurrence: US)
  Receive Date: 20210203
  Receipt Date: 20210223
  Transmission Date: 20210419
  Serious: No
  Sender: FDA-Public Use
  Company Number: US-KYOWAKIRIN-2021BKK001384

PATIENT

DRUGS (1)
  1. CRYSVITA [Suspect]
     Active Substance: BUROSUMAB-TWZA
     Indication: RICKETS
     Dosage: UNK
     Route: 065
     Dates: start: 20180927, end: 20210121

REACTIONS (1)
  - Blood calcium abnormal [Recovered/Resolved]
